FAERS Safety Report 23944185 (Version 1)
Quarter: 2024Q2

REPORT INFORMATION
  Report Type: Spontaneous
  Country: US (occurrence: US)
  Receive Date: 20240606
  Receipt Date: 20240606
  Transmission Date: 20240715
  Serious: No
  Sender: FDA-Public Use
  Company Number: US-MankindUS-000146

PATIENT
  Sex: Female

DRUGS (1)
  1. OFLOXACIN [Suspect]
     Active Substance: OFLOXACIN
     Indication: Product used for unknown indication
     Dosage: 1 DROP AT NIGHT AND 1 IN MORNING;ON 25-FEB +AMP; 26-FEB; STRENGTH:5 ML

REACTIONS (2)
  - Poor quality product administered [Unknown]
  - Product container seal issue [Unknown]
